FAERS Safety Report 16860934 (Version 2)
Quarter: 2020Q4

REPORT INFORMATION
  Report Type: Spontaneous
  Country: CH (occurrence: CH)
  Receive Date: 20190927
  Receipt Date: 20201207
  Transmission Date: 20210113
  Serious: Yes (Other)
  Sender: FDA-Public Use
  Company Number: CH-PFIZER INC-2019412088

PATIENT
  Age: 47 Year
  Sex: Female

DRUGS (23)
  1. HEPARINE [HEPARIN] [Suspect]
     Active Substance: HEPARIN SODIUM
     Dosage: AS NECESSARY
     Route: 042
     Dates: start: 20190818, end: 20190824
  2. DAFALGAN [Suspect]
     Active Substance: ACETAMINOPHEN
     Dosage: 1 G, 3X/DAY
     Route: 048
     Dates: start: 20190820, end: 20190828
  3. TRAMAL [Concomitant]
     Active Substance: TRAMADOL
     Dosage: NOT TAKEN; AS NECESSARY
     Dates: end: 20190902
  4. PLAQUENIL [Concomitant]
     Active Substance: HYDROXYCHLOROQUINE SULFATE
     Dosage: UNK
     Dates: start: 2007, end: 2019
  5. TEMESTA (LORAZEPAM) [Suspect]
     Active Substance: LORAZEPAM
     Dosage: AS NECESSARY (1XD, RECEIVED IT PRETTY MUCH EVERY DAY)
     Dates: start: 20190827, end: 20190902
  6. DAFALGAN [Suspect]
     Active Substance: ACETAMINOPHEN
     Dosage: 1 G, NOT TAKEN; AS NECESSARY
     Route: 048
     Dates: start: 20190828, end: 20190902
  7. ASPIRIN CARDIO [Concomitant]
     Active Substance: ASPIRIN
     Dosage: UNK
     Dates: start: 2007, end: 2019
  8. IRFEN [Suspect]
     Active Substance: IBUPROFEN
     Dosage: 400 MG, 3X/DAY
     Route: 048
     Dates: start: 20190825, end: 20190902
  9. PERINDOPRIL [Concomitant]
     Active Substance: PERINDOPRIL
     Dates: end: 20190818
  10. HEPARINE [HEPARIN] [Suspect]
     Active Substance: HEPARIN SODIUM
     Dosage: AS NECESSARY
     Route: 042
     Dates: start: 20190826, end: 20190827
  11. WARFARINE [Suspect]
     Active Substance: WARFARIN
     Dosage: 7.5 MG, 1X/DAY
     Route: 048
     Dates: start: 20190902
  12. SEVREDOL [Concomitant]
     Active Substance: MORPHINE
     Dosage: UNK
     Dates: start: 20190820, end: 20190820
  13. CLEXANE [Suspect]
     Active Substance: ENOXAPARIN SODIUM
     Dosage: 70 MG, 2X/DAY (1X/12H)
     Dates: start: 20190827, end: 201909
  14. LASIX [Concomitant]
     Active Substance: FUROSEMIDE
     Dosage: UNK
     Dates: start: 20190820
  15. MG 5-GRANORAL [Concomitant]
     Dosage: UNK
     Dates: start: 20190820
  16. WARFARINE [Suspect]
     Active Substance: WARFARIN
     Dosage: 5 MG, 1X/DAY
     Route: 048
     Dates: start: 201907, end: 20190818
  17. FERRUM [IRON] [Concomitant]
     Active Substance: IRON
     Dosage: UNK
     Dates: start: 20190820
  18. MOVICOL PLAIN [Concomitant]
     Active Substance: POLYETHYLENE GLYCOL 3350\POTASSIUM CHLORIDE\SODIUM BICARBONATE\SODIUM CHLORIDE
     Dosage: UNK
     Dates: start: 20190820
  19. CLEXANE [Suspect]
     Active Substance: ENOXAPARIN SODIUM
     Dosage: 60 MG, 2X/DAY (1X/12H )
     Dates: start: 20190823, end: 20190825
  20. FUROSEMIDE. [Concomitant]
     Active Substance: FUROSEMIDE
     Dosage: UNK
     Dates: end: 20190818
  21. NEXIUM [Suspect]
     Active Substance: ESOMEPRAZOLE MAGNESIUM
     Dosage: 40 MG, 1X/DAY
     Route: 048
     Dates: start: 20190820, end: 201909
  22. WARFARINE [Suspect]
     Active Substance: WARFARIN
     Dosage: 5 MG, 1X/DAY
     Route: 048
     Dates: start: 20190828, end: 20190902
  23. PREDNISONE. [Concomitant]
     Active Substance: PREDNISONE
     Dosage: UNK
     Dates: start: 20190827, end: 20190829

REACTIONS (1)
  - Mixed liver injury [Recovered/Resolved]

NARRATIVE: CASE EVENT DATE: 20190902
